FAERS Safety Report 8342802-5 (Version None)
Quarter: 2012Q2

REPORT INFORMATION
  Report Type: 
  Country: None (occurrence: None)
  Receive Date: 20120508
  Receipt Date: 20120502
  Transmission Date: 20120825
  Serious: Yes (Hospitalization)
  Sender: FDA-Public Use
  Company Number: FR-AMGEN-FRASP2012027461

PATIENT
  Age: 47 Year
  Sex: Male

DRUGS (7)
  1. BLEOMYCIN SULFATE [Concomitant]
     Indication: NON-HODGKIN'S LYMPHOMA METASTATIC
  2. CYCLOPHOSPHAMIDE [Concomitant]
     Indication: NON-HODGKIN'S LYMPHOMA METASTATIC
  3. VINDESINE [Concomitant]
     Indication: NON-HODGKIN'S LYMPHOMA METASTATIC
  4. NEULASTA [Suspect]
     Indication: CHEMOTHERAPY
     Dosage: UNK
     Dates: start: 20120413
  5. RITUXIMAB [Concomitant]
     Indication: NON-HODGKIN'S LYMPHOMA METASTATIC
     Dosage: UNK
     Dates: start: 20120412
  6. DOXORUBICIN HCL [Concomitant]
     Indication: NON-HODGKIN'S LYMPHOMA METASTATIC
  7. PREDNISONE TAB [Concomitant]
     Indication: NON-HODGKIN'S LYMPHOMA METASTATIC

REACTIONS (1)
  - FEBRILE BONE MARROW APLASIA [None]
